FAERS Safety Report 7549779-0 (Version None)
Quarter: 2011Q2

REPORT INFORMATION
  Report Type: 
  Country: None (occurrence: None)
  Receive Date: 20110615
  Receipt Date: 20080229
  Transmission Date: 20111010
  Serious: Yes (Other)
  Sender: FDA-Public Use
  Company Number: PHHY2007CA01012

PATIENT
  Sex: Female

DRUGS (1)
  1. SANDOSTATIN LAR [Suspect]
     Dosage: 30 MG, EVERY 6 WEEKS
     Route: 030
     Dates: start: 19990801, end: 20071219

REACTIONS (11)
  - THIRST [None]
  - MUSCLE STRAIN [None]
  - RASH [None]
  - OCULAR ICTERUS [None]
  - MENSTRUATION IRREGULAR [None]
  - PALLOR [None]
  - VENTRICULAR EXTRASYSTOLES [None]
  - POLLAKIURIA [None]
  - INCREASED UPPER AIRWAY SECRETION [None]
  - BRADYCARDIA [None]
  - FATIGUE [None]
